FAERS Safety Report 21691130 (Version 3)
Quarter: 2023Q1

REPORT INFORMATION
  Report Type: Spontaneous
  Country: CA (occurrence: CA)
  Receive Date: 20221207
  Receipt Date: 20230322
  Transmission Date: 20230418
  Serious: Yes (Other)
  Sender: FDA-Public Use
  Company Number: CA-CELLTRION INC.-2022CA017046

PATIENT

DRUGS (9)
  1. INFLECTRA [Suspect]
     Active Substance: INFLIXIMAB-DYYB
     Indication: Colitis ulcerative
     Dosage: 700 MG, INDUCTION DOSES AT WEEK 0, 2 AND 6, THEN EVERY 8 WEEKS
     Route: 042
     Dates: start: 20220623, end: 20220929
  2. INFLECTRA [Suspect]
     Active Substance: INFLIXIMAB-DYYB
     Dosage: 700 MG, INDUCTION DOSES AT WEEK 0, 2 AND 6, THEN EVERY 8 WEEKS
     Route: 042
     Dates: start: 20220929
  3. INFLECTRA [Suspect]
     Active Substance: INFLIXIMAB-DYYB
     Dosage: 700 MG EVERY 4 WEEK
     Route: 042
     Dates: start: 20221125
  4. INFLECTRA [Suspect]
     Active Substance: INFLIXIMAB-DYYB
     Dosage: 700 MG EVERY 4 WEEK
     Route: 042
     Dates: start: 20221223
  5. INFLECTRA [Suspect]
     Active Substance: INFLIXIMAB-DYYB
     Dosage: 700 MG EVERY 4 WEEK
     Route: 042
     Dates: start: 20221223
  6. INFLECTRA [Suspect]
     Active Substance: INFLIXIMAB-DYYB
     Dosage: 700 MG EVERY 4 WEEK
     Route: 042
     Dates: start: 20230215
  7. INFLECTRA [Suspect]
     Active Substance: INFLIXIMAB-DYYB
     Dosage: 700 MG EVERY 4 WEEK
     Route: 042
     Dates: start: 20230314
  8. IMURAN [Concomitant]
     Active Substance: AZATHIOPRINE
     Dosage: 1 DF
     Route: 065
     Dates: start: 20220603
  9. MESALAMINE [Concomitant]
     Active Substance: MESALAMINE
     Dosage: 1 DF
     Route: 065

REACTIONS (7)
  - Weight decreased [Unknown]
  - Off label use [Unknown]
  - Inappropriate schedule of product administration [Unknown]
  - Dizziness [Recovered/Resolved]
  - Faecal calprotectin increased [Unknown]
  - Condition aggravated [Recovered/Resolved]
  - Condition aggravated [Not Recovered/Not Resolved]

NARRATIVE: CASE EVENT DATE: 20220101
